FAERS Safety Report 20255346 (Version 1)
Quarter: 2021Q4

REPORT INFORMATION
  Report Type: Spontaneous
  Country: FR (occurrence: FR)
  Receive Date: 20211230
  Receipt Date: 20211230
  Transmission Date: 20220303
  Serious: Yes (Other)
  Sender: FDA-Public Use
  Company Number: FR-ABBVIE-21K-056-4208065-00

PATIENT
  Sex: Female

DRUGS (6)
  1. VALPROATE SODIUM [Suspect]
     Active Substance: VALPROATE SODIUM
     Indication: Epilepsy
     Dosage: 2.5 TABLETS DAILY
     Route: 065
     Dates: start: 19831223
  2. FOLIC ACID [Concomitant]
     Active Substance: FOLIC ACID
     Indication: Product used for unknown indication
  3. ZARONTIN [Concomitant]
     Active Substance: ETHOSUXIMIDE
     Indication: Product used for unknown indication
  4. RIVOTRIL [Concomitant]
     Active Substance: CLONAZEPAM
     Indication: Product used for unknown indication
  5. ALEPSAL [Concomitant]
     Indication: Product used for unknown indication
  6. FOLDINE [Concomitant]
     Indication: Product used for unknown indication
     Dosage: 4 TABLETS PER DAY

REACTIONS (3)
  - Seizure [Unknown]
  - Maternal exposure during pregnancy [Unknown]
  - Live birth [Unknown]
